FAERS Safety Report 8361473-5 (Version None)
Quarter: 2012Q2

REPORT INFORMATION
  Report Type: 
  Country: None (occurrence: None)
  Receive Date: 20120515
  Receipt Date: 20120503
  Transmission Date: 20120825
  Serious: Yes (Other)
  Sender: FDA-Public Use
  Company Number: US-BRISTOL-MYERS SQUIBB COMPANY-16571499

PATIENT
  Age: 23 Year
  Sex: Male

DRUGS (1)
  1. MITOTANE [Suspect]
     Indication: CUSHING'S SYNDROME

REACTIONS (2)
  - ADRENAL INSUFFICIENCY [None]
  - HYPOTHYROIDISM [None]
